FAERS Safety Report 18499405 (Version 1)
Quarter: 2020Q4

REPORT INFORMATION
  Report Type: Spontaneous
  Country: US (occurrence: US)
  Receive Date: 20201112
  Receipt Date: 20201112
  Transmission Date: 20210114
  Serious: Yes (Death, Hospitalization)
  Sender: FDA-Public Use
  Company Number: US-JNJFOC-20201107911

PATIENT
  Age: 53 Year
  Sex: Male

DRUGS (2)
  1. PARACETAMOL [Suspect]
     Active Substance: ACETAMINOPHEN
     Indication: PRODUCT USED FOR UNKNOWN INDICATION
     Route: 065
  2. ALCOHOL. [Suspect]
     Active Substance: ALCOHOL
     Indication: PRODUCT USED FOR UNKNOWN INDICATION
     Route: 065

REACTIONS (17)
  - Rhabdomyolysis [Fatal]
  - Unresponsive to stimuli [Fatal]
  - Intentional overdose [Fatal]
  - Cardiac arrest [Fatal]
  - Blood magnesium increased [Fatal]
  - Metabolic acidosis [Fatal]
  - Renal failure [Fatal]
  - White blood cell count increased [Fatal]
  - Blood glucose increased [Fatal]
  - Completed suicide [Fatal]
  - Blood calcium decreased [Fatal]
  - Drug-induced liver injury [Fatal]
  - Blood creatine phosphokinase increased [Fatal]
  - Multiple organ dysfunction syndrome [Fatal]
  - Septic shock [Fatal]
  - Respiratory failure [Fatal]
  - Blood potassium decreased [Fatal]
